FAERS Safety Report 16892681 (Version 1)
Quarter: 2019Q4

REPORT INFORMATION
  Report Type: Spontaneous
  Country: DK (occurrence: DK)
  Receive Date: 20191007
  Receipt Date: 20191007
  Transmission Date: 20200122
  Serious: Yes (Hospitalization)
  Sender: FDA-Public Use
  Company Number: DK-PFIZER INC-2019425011

PATIENT
  Age: 66 Year
  Sex: Female

DRUGS (5)
  1. VINORELBINE [Concomitant]
     Active Substance: VINORELBINE TARTRATE
     Indication: LUNG NEOPLASM MALIGNANT
     Dosage: DOSE: UNKNOWN. STRENGTH: UNKNOWN
     Dates: start: 20170703, end: 201710
  2. FRAGMIN [Suspect]
     Active Substance: DALTEPARIN SODIUM
     Indication: THROMBOSIS PROPHYLAXIS
     Route: 058
     Dates: start: 2017
  3. CARBOPLATIN. [Concomitant]
     Active Substance: CARBOPLATIN
     Indication: LUNG NEOPLASM MALIGNANT
     Dosage: DOSE: UNKNOWN. STRENGTH: UNKNOWN.
     Dates: start: 20170703, end: 201710
  4. PREDNISOLONE. [Suspect]
     Active Substance: PREDNISOLONE
     Indication: PROPHYLAXIS OF NAUSEA AND VOMITING
     Dosage: DOSE: VARYING. STRENGTH: 25 MG
     Route: 048
     Dates: start: 20170702, end: 201803
  5. ALIMTA [Concomitant]
     Active Substance: PEMETREXED DISODIUM
     Indication: LUNG NEOPLASM MALIGNANT
     Dosage: 900 MG, EVERY 3 WEEKS (STRENGTH: 100 MG (9 SERIES GIVEN)
     Dates: start: 201710, end: 20180416

REACTIONS (9)
  - Walking aid user [Unknown]
  - Back pain [Unknown]
  - Lumbar vertebral fracture [Unknown]
  - Intervertebral disc protrusion [Unknown]
  - Loss of personal independence in daily activities [Unknown]
  - Spinal compression fracture [Unknown]
  - Osteoporosis [Not Recovered/Not Resolved]
  - Bone decalcification [Not Recovered/Not Resolved]
  - Pain [Unknown]

NARRATIVE: CASE EVENT DATE: 2017
